FAERS Safety Report 6740702-5 (Version None)
Quarter: 2010Q2

REPORT INFORMATION
  Report Type: 
  Country: None (occurrence: None)
  Receive Date: 20100521
  Receipt Date: 20100511
  Transmission Date: 20101027
  Serious: Yes (Hospitalization)
  Sender: FDA-Public Use
  Company Number: 011731

PATIENT
  Sex: Female

DRUGS (14)
  1. XYZAL [Suspect]
     Dosage: ( 5 MG ORAL)
     Route: 048
     Dates: start: 20100424, end: 20100426
  2. FUCIDINE CAP [Suspect]
     Indication: INFECTED SKIN ULCER
     Dosage: DOSE ORAL
     Route: 048
     Dates: start: 20100413, end: 20100429
  3. LYRICA [Suspect]
     Indication: NEURALGIA
     Dosage: (75 MG BID ORAL)
     Route: 048
     Dates: start: 20100423, end: 20100426
  4. IMOVANE [Concomitant]
  5. GAVISCON /00237601/ [Concomitant]
  6. TRIATEC /00885601/ [Concomitant]
  7. LASILIX /00032601/ [Concomitant]
  8. HEMIGLXINE [Concomitant]
  9. CARDENSIEL [Concomitant]
  10. INEXIUM /01479302/ [Concomitant]
  11. PREVISCAN /00261401/ [Concomitant]
  12. ALDACTONE [Concomitant]
  13. OXYCODONE HCL [Concomitant]
  14. OXYCONTIN [Concomitant]

REACTIONS (4)
  - AGRANULOCYTOSIS [None]
  - EOSINOPHILIA [None]
  - NEUTROPENIA [None]
  - THROMBOCYTOPENIA [None]
